FAERS Safety Report 8761267 (Version 1)
Quarter: 2012Q4

REPORT INFORMATION
  Report Type: 
  Country: VE (occurrence: VE)
  Receive Date: 20120830
  Receipt Date: 20120830
  Transmission Date: 20130627
  Serious: Yes (Hospitalization)
  Sender: FDA-Public Use
  Company Number: VE-B.I. PHARMACEUTICALS,INC./RIDGEFIELD-2012-RA-00226RA

PATIENT
  Age: 77 Year
  Sex: Male

DRUGS (5)
  1. PRADAXA [Suspect]
     Indication: ATRIAL FIBRILLATION
     Dosage: 220 mg
     Route: 048
     Dates: start: 201009
  2. CARVEDILOL [Concomitant]
     Indication: HYPERTENSION
  3. SIMVASTATINA [Concomitant]
  4. AMIODARONA [Concomitant]
     Indication: VENTRICULAR FIBRILLATION
  5. LOSARTAN [Concomitant]
     Indication: HYPERTENSION

REACTIONS (1)
  - Cerebrovascular accident [Recovered/Resolved]
